FAERS Safety Report 4803346-8 (Version None)
Quarter: 2005Q4

REPORT INFORMATION
  Report Type: 
  Country: None (occurrence: None)
  Receive Date: 20051019
  Receipt Date: 20050221
  Transmission Date: 20060501
  Serious: Yes (Other)
  Sender: FDA-Public Use
  Company Number: PHBS2005US02612

PATIENT
  Age: 49 Year
  Sex: Female

DRUGS (1)
  1. OXCARBAZEPINE [Suspect]
     Indication: PAIN
     Route: 065

REACTIONS (5)
  - BLOOD IMMUNOGLOBULIN A DECREASED [None]
  - BLOOD IMMUNOGLOBULIN G DECREASED [None]
  - BLOOD IMMUNOGLOBULIN M DECREASED [None]
  - IMMUNOGLOBULINS DECREASED [None]
  - VAGINITIS BACTERIAL [None]
